FAERS Safety Report 8850086 (Version 4)
Quarter: 2013Q1

REPORT INFORMATION
  Report Type: Spontaneous
  Country: FR (occurrence: FR)
  Receive Date: 20121019
  Receipt Date: 20130318
  Transmission Date: 20140127
  Serious: Yes (Other)
  Sender: FDA-Public Use
  Company Number: FR-PFIZER INC-2012258535

PATIENT
  Age: 61 Year
  Sex: Female
  Weight: 83 kg

DRUGS (8)
  1. LYRICA [Suspect]
     Dosage: 2 DF, 2X/DAY
     Dates: start: 2011
  2. KERLONE [Concomitant]
     Dosage: 20 MG 1/2 TABLET TWICE DAILY
     Dates: start: 1987
  3. ALDALIX [Concomitant]
     Dosage: 25 MG, UNK
     Dates: start: 1987
  4. PROZAC [Concomitant]
     Dosage: UNK
     Dates: start: 2010
  5. OKIMUS [Concomitant]
     Dosage: 1 DF, 2X/DAY
     Dates: start: 2010
  6. CRESTOR [Concomitant]
     Dosage: 5 MG, 1X/DAY
  7. KARDEGIC [Concomitant]
     Dosage: 1 SACHET IN MORNING
  8. FLECTOR [Concomitant]
     Dosage: 1 APPLICATION IN MORNING AND IN EVENING FOR 7 DAYS

REACTIONS (5)
  - Retinal artery occlusion [Not Recovered/Not Resolved]
  - Retinal vein occlusion [Not Recovered/Not Resolved]
  - Retinal oedema [Not Recovered/Not Resolved]
  - Blindness unilateral [Not Recovered/Not Resolved]
  - Vision blurred [Not Recovered/Not Resolved]
